FAERS Safety Report 15433459 (Version 1)
Quarter: 2018Q3

REPORT INFORMATION
  Report Type: Spontaneous
  Country: US (occurrence: US)
  Receive Date: 20180921
  Receipt Date: 20180921
  Transmission Date: 20181010
  Serious: Yes (Hospitalization)
  Sender: FDA-Public Use
  Company Number: None

PATIENT
  Sex: Male

DRUGS (19)
  1. XODIUM BICARBONATE POWDER [Concomitant]
  2. CALCIUM [Concomitant]
     Active Substance: CALCIUM
  3. LASIX [Concomitant]
     Active Substance: FUROSEMIDE
  4. LASIX [Concomitant]
     Active Substance: FUROSEMIDE
  5. VITAMIN D3 [Concomitant]
     Active Substance: CHOLECALCIFEROL
  6. FLUCONAZOLE. [Concomitant]
     Active Substance: FLUCONAZOLE
  7. ALLOPURINOL. [Concomitant]
     Active Substance: ALLOPURINOL
  8. BOSULIF [Suspect]
     Active Substance: BOSUTINIB MONOHYDRATE
     Indication: CHRONIC MYELOID LEUKAEMIA
     Route: 048
     Dates: start: 20150602
  9. EPOGEN [Concomitant]
     Active Substance: ERYTHROPOIETIN
  10. FINASTERIDE. [Concomitant]
     Active Substance: FINASTERIDE
  11. ALLOPURINOL. [Concomitant]
     Active Substance: ALLOPURINOL
  12. DOXAZOSIN [Concomitant]
     Active Substance: DOXAZOSIN\DOXAZOSIN MESYLATE
  13. CLOPIDOGREL [Concomitant]
     Active Substance: CLOPIDOGREL BISULFATE
  14. CARDURA [Concomitant]
     Active Substance: DOXAZOSIN MESYLATE
  15. CARDURA [Concomitant]
     Active Substance: DOXAZOSIN MESYLATE
  16. ROSUVASTATIN. [Concomitant]
     Active Substance: ROSUVASTATIN
  17. AMLODIPINE [Concomitant]
     Active Substance: AMLODIPINE BESYLATE
  18. ATORVASTATIN [Concomitant]
     Active Substance: ATORVASTATIN
  19. IRON [Concomitant]
     Active Substance: IRON

REACTIONS (2)
  - Cystitis [None]
  - Upper limb fracture [None]
